FAERS Safety Report 7148794-9 (Version None)
Quarter: 2010Q4

REPORT INFORMATION
  Report Type: 
  Country: None (occurrence: None)
  Receive Date: 20101209
  Receipt Date: 20101125
  Transmission Date: 20110411
  Serious: Yes (Other)
  Sender: FDA-Public Use
  Company Number: PHHY2010CA80626

PATIENT
  Sex: Male

DRUGS (2)
  1. CLOZARIL [Suspect]
     Indication: SCHIZOPHRENIA
     Dosage: 400 MG
     Route: 048
     Dates: start: 20100921, end: 20101122
  2. ZYPREXA [Concomitant]

REACTIONS (3)
  - HALLUCINATION [None]
  - SLEEP APNOEA SYNDROME [None]
  - SUFFOCATION FEELING [None]
